FAERS Safety Report 7968878-2 (Version None)
Quarter: 2011Q4

REPORT INFORMATION
  Report Type: 
  Country: None (occurrence: None)
  Receive Date: 20111209
  Receipt Date: 20111130
  Transmission Date: 20120403
  Serious: Yes (Other)
  Sender: FDA-Public Use
  Company Number: US-BAYER-2011-115939

PATIENT
  Age: 43 Year
  Sex: Female
  Weight: 78 kg

DRUGS (10)
  1. VICODIN [Suspect]
     Indication: ARTHRALGIA
     Dosage: UNK
     Dates: start: 20111001, end: 20111001
  2. LYRICA [Suspect]
     Indication: PRODUCT USED FOR UNKNOWN INDICATION
     Dosage: UNK
  3. TYLENOL WITH CODEIN [CAFFEINE,CODEINE PHOSPHATE,PARACETAMOL] [Concomitant]
     Dosage: UNK
     Dates: start: 20110101
  4. HUMIRA [Suspect]
     Indication: RHEUMATOID ARTHRITIS
     Dosage: 40 MG, 2 INJECTIONS
     Dates: start: 20110401, end: 20110101
  5. ACETAMINOPHEN AND CODEINE PHOSPHATE [Suspect]
     Indication: RHEUMATOID ARTHRITIS
     Dosage: UNK
     Dates: start: 20111001, end: 20111001
  6. SIMPONI [Suspect]
     Indication: RHEUMATOID ARTHRITIS
     Dosage: UNK
     Dates: start: 20111001, end: 20111001
  7. CRESTOR [Suspect]
  8. CELEBREX [Suspect]
     Indication: RHEUMATOID ARTHRITIS
  9. PLAQUENIL [Suspect]
     Indication: RHEUMATOID ARTHRITIS
     Dosage: UNK
     Dates: start: 20100101
  10. ALEVE (CAPLET) [Suspect]
     Indication: ARTHRALGIA

REACTIONS (7)
  - WEIGHT INCREASED [None]
  - HEADACHE [None]
  - VOMITING [None]
  - BLOOD GLUCOSE INCREASED [None]
  - NAUSEA [None]
  - DEPRESSION [None]
  - CONVULSION [None]
